FAERS Safety Report 23698277 (Version 1)
Quarter: 2024Q2

REPORT INFORMATION
  Report Type: Spontaneous
  Country: US (occurrence: None)
  Receive Date: 20240402
  Receipt Date: 20240402
  Transmission Date: 20240715
  Serious: No
  Sender: FDA-Public Use
  Company Number: None

PATIENT
  Sex: Female
  Weight: 81 kg

DRUGS (7)
  1. VENLAFAXINE [Suspect]
     Active Substance: VENLAFAXINE HYDROCHLORIDE
     Indication: Depression
     Dosage: OTHER QUANTITY : 1 CAPSULE(S);?FREQUENCY : DAILY;?
     Route: 048
     Dates: start: 20240124
  2. VENLAFAXINE [Suspect]
     Active Substance: VENLAFAXINE HYDROCHLORIDE
     Indication: Anxiety
  3. NITROFURANTOIN [Concomitant]
     Active Substance: NITROFURANTOIN
  4. MEDROXYPR AC [Concomitant]
  5. CLIMARA [Concomitant]
     Active Substance: ESTRADIOL
  6. AMPHET/DEXTR E [Concomitant]
  7. ADDERALL [Suspect]
     Active Substance: AMPHETAMINE ASPARTATE\AMPHETAMINE SULFATE\DEXTROAMPHETAMINE SACCHARATE\DEXTROAMPHETAMINE SULFATE

REACTIONS (8)
  - Agitation [None]
  - Restlessness [None]
  - Irritability [None]
  - Anger [None]
  - Insomnia [None]
  - Muscle tightness [None]
  - Chest pain [None]
  - Pruritus [None]
